FAERS Safety Report 4580250-4 (Version None)
Quarter: 2005Q1

REPORT INFORMATION
  Report Type: 
  Country: None (occurrence: None)
  Receive Date: 20050214
  Receipt Date: 20050119
  Transmission Date: 20050727
  Serious: Yes (Disabling)
  Sender: FDA-Public Use
  Company Number: JP-GLAXOSMITHKLINE-B0365747A

PATIENT
  Age: 32 Year
  Sex: Male
  Weight: 65 kg

DRUGS (7)
  1. VALTREX [Suspect]
     Indication: HERPES ZOSTER OTICUS
     Dosage: 1000MG THREE TIMES PER DAY
     Route: 048
     Dates: start: 20050114, end: 20050117
  2. ZOVIRAX [Concomitant]
     Dosage: 250ML PER DAY
     Route: 042
     Dates: start: 20050114, end: 20050114
  3. LORCAM [Concomitant]
     Indication: PAIN
     Dosage: 12MG PER DAY
     Route: 048
     Dates: start: 20050114, end: 20050114
  4. MARZULENE [Concomitant]
     Indication: PAIN
     Dosage: 1.5G PER DAY
     Route: 048
     Dates: start: 20050114, end: 20050114
  5. MUCOSTA [Concomitant]
     Indication: GASTROINTESTINAL DISORDER
     Dosage: 300MG PER DAY
     Route: 048
     Dates: start: 20050116, end: 20050116
  6. PRIMPERAN INJ [Concomitant]
     Indication: GASTROINTESTINAL DISORDER
     Dosage: 15MG PER DAY
     Route: 048
     Dates: start: 20050116, end: 20050116
  7. OFLOXACIN [Concomitant]
     Indication: OTITIS EXTERNA
     Route: 061
     Dates: start: 20050117

REACTIONS (9)
  - AMNESIA [None]
  - CHEST DISCOMFORT [None]
  - DYSCALCULIA [None]
  - DYSPNOEA [None]
  - FEELING DRUNK [None]
  - GASTROINTESTINAL DISORDER [None]
  - HEADACHE [None]
  - NAUSEA [None]
  - RESTLESSNESS [None]
